FAERS Safety Report 12996250 (Version 3)
Quarter: 2017Q1

REPORT INFORMATION
  Report Type: Spontaneous
  Country: US (occurrence: US)
  Receive Date: 20161203
  Receipt Date: 20170120
  Transmission Date: 20170428
  Serious: Yes (Death, Other)
  Sender: FDA-Public Use
  Company Number: US-LUNDBECK-DKLU2023311

PATIENT
  Age: 53 Year
  Sex: Male
  Weight: 82 kg

DRUGS (13)
  1. NORTHERA [Suspect]
     Active Substance: DROXIDOPA
     Indication: NEURODEGENERATIVE DISORDER
     Dosage: SCHEDULE B
     Route: 065
     Dates: start: 20161104
  2. CARBIDOPA/LEVODOPA [Concomitant]
     Active Substance: CARBIDOPA\LEVODOPA
     Indication: MUSCULOSKELETAL STIFFNESS
  3. GABAPENTIN. [Concomitant]
     Active Substance: GABAPENTIN
     Indication: HYPOAESTHESIA
     Route: 065
     Dates: start: 201610
  4. DOCUSATE [Concomitant]
     Active Substance: DOCUSATE
     Indication: CONSTIPATION
     Route: 065
     Dates: start: 2015
  5. NUEDEXTA [Concomitant]
     Active Substance: DEXTROMETHORPHAN HYDROBROMIDE\QUINIDINE SULFATE
     Indication: AFFECT LABILITY
     Route: 065
     Dates: start: 2016, end: 201610
  6. GABAPENTIN. [Concomitant]
     Active Substance: GABAPENTIN
     Indication: PARAESTHESIA
  7. CARBIDOPA/LEVODOPA [Concomitant]
     Active Substance: CARBIDOPA\LEVODOPA
     Indication: MUSCLE RIGIDITY
     Dosage: 50/200 MG
     Route: 065
     Dates: start: 2015
  8. CARBIDOPA/LEVODOPA [Concomitant]
     Active Substance: CARBIDOPA\LEVODOPA
     Indication: MULTIPLE SYSTEM ATROPHY
     Dosage: 25/250 MG
     Route: 065
     Dates: start: 2015
  9. GABAPENTIN. [Concomitant]
     Active Substance: GABAPENTIN
     Indication: NEURALGIA
  10. FLORINEF ACETATE [Concomitant]
     Active Substance: FLUDROCORTISONE ACETATE
     Indication: ORTHOSTATIC HYPOTENSION
     Route: 065
     Dates: start: 201608, end: 201610
  11. NORTHERA [Suspect]
     Active Substance: DROXIDOPA
     Indication: ORTHOSTATIC HYPOTENSION
     Dosage: SCHEDULE B
     Route: 048
     Dates: start: 20161111
  12. NORTHERA [Suspect]
     Active Substance: DROXIDOPA
     Indication: MULTIPLE SYSTEM ATROPHY
     Route: 048
  13. CARBIDOPA/LEVODOPA [Concomitant]
     Active Substance: CARBIDOPA\LEVODOPA
     Indication: PARKINSONISM

REACTIONS (3)
  - Head injury [Fatal]
  - Internal injury [Fatal]
  - Fall [Unknown]

NARRATIVE: CASE EVENT DATE: 20161127
